FAERS Safety Report 6699003-6 (Version None)
Quarter: 2010Q2

REPORT INFORMATION
  Report Type: 
  Country: None (occurrence: None)
  Receive Date: 20100427
  Receipt Date: 20100414
  Transmission Date: 20101027
  Serious: Yes (Hospitalization)
  Sender: FDA-Public Use
  Company Number: US-WATSON-2010-05407

PATIENT
  Age: 35 Year
  Sex: Female

DRUGS (3)
  1. SUMATRIPTAN SUCCINATE (WATSON LABORATORIES) [Suspect]
     Indication: MIGRAINE
     Dosage: 300 MG OVER 36 HOURS, UNK
     Route: 048
  2. SUMATRIPTAN SUCCINATE (WATSON LABORATORIES) [Suspect]
     Dosage: 12 MG SUBCUTANEOUS OVER 36 HOURS
     Route: 058
  3. IBUPROFEN TABLETS [Suspect]
     Indication: MIGRAINE
     Dosage: 800 MG, SINGLE

REACTIONS (1)
  - COLITIS ISCHAEMIC [None]
